FAERS Safety Report 6405922-8 (Version None)
Quarter: 2009Q4

REPORT INFORMATION
  Report Type: 
  Country: None (occurrence: None)
  Receive Date: 20091019
  Receipt Date: 20091014
  Transmission Date: 20100525
  Serious: Yes (Death)
  Sender: FDA-Public Use
  Company Number: JP-ASTRAZENECA-2009AC01487

PATIENT
  Age: 27074 Day
  Sex: Male
  Weight: 43 kg

DRUGS (12)
  1. IRESSA [Suspect]
     Indication: LUNG NEOPLASM MALIGNANT
     Route: 048
     Dates: start: 20090417, end: 20090504
  2. WARFARIN SODIUM [Suspect]
     Indication: ATRIAL FIBRILLATION
     Route: 048
     Dates: start: 20090411, end: 20090506
  3. LASIX [Concomitant]
     Indication: CARDIAC FAILURE CHRONIC
     Route: 048
     Dates: end: 20090507
  4. ALDACTONE [Concomitant]
     Indication: CARDIAC FAILURE CHRONIC
     Route: 048
     Dates: end: 20090507
  5. SELBEX [Concomitant]
     Indication: GASTRITIS
     Route: 048
     Dates: end: 20090507
  6. MAGLAX [Concomitant]
     Indication: CONSTIPATION
     Route: 048
     Dates: end: 20090507
  7. AMOBAN [Concomitant]
     Indication: INSOMNIA
     Route: 048
     Dates: end: 20090507
  8. FRANDOL [Concomitant]
     Indication: ANGINA PECTORIS
     Route: 062
     Dates: end: 20090508
  9. HALFDIGOXIN [Concomitant]
     Indication: CARDIAC FAILURE CHRONIC
     Route: 048
     Dates: end: 20090511
  10. TENORMIN [Concomitant]
     Indication: CARDIAC FAILURE CHRONIC
     Route: 048
     Dates: end: 20090511
  11. TAKEPRON [Concomitant]
     Indication: REFLUX OESOPHAGITIS
     Route: 048
     Dates: start: 20090504, end: 20090507
  12. NAUZELIN [Concomitant]
     Indication: GASTRITIS
     Route: 048
     Dates: start: 20090505, end: 20090507

REACTIONS (2)
  - CARDIAC FAILURE [None]
  - PULMONARY ALVEOLAR HAEMORRHAGE [None]
